FAERS Safety Report 8265053-1 (Version None)
Quarter: 2012Q2

REPORT INFORMATION
  Report Type: 
  Country: None (occurrence: None)
  Receive Date: 20120406
  Receipt Date: 20120323
  Transmission Date: 20120825
  Serious: Yes (Other)
  Sender: FDA-Public Use
  Company Number: GB-CELGENEUS-167-20785-12032977

PATIENT
  Sex: Female

DRUGS (2)
  1. THALIDOMIDE [Suspect]
     Route: 048
  2. BEVACIZUMAB [Concomitant]
     Route: 065

REACTIONS (3)
  - HEPATIC CIRRHOSIS [None]
  - GASTROINTESTINAL ANGIODYSPLASIA [None]
  - ADVERSE EVENT [None]
